FAERS Safety Report 20170602 (Version 2)
Quarter: 2023Q2

REPORT INFORMATION
  Report Type: Spontaneous
  Country: US (occurrence: US)
  Receive Date: 20211210
  Receipt Date: 20230412
  Transmission Date: 20230721
  Serious: Yes (Hospitalization, Other)
  Sender: FDA-Public Use
  Company Number: US-AMGEN-USASP2021189874

PATIENT
  Age: 16 Year
  Sex: Female

DRUGS (2)
  1. INFLIXIMAB [Suspect]
     Active Substance: INFLIXIMAB
     Indication: Colitis ulcerative
     Dosage: 6 MILLIGRAM, Q8H
     Route: 065
  2. INFLIXIMAB [Suspect]
     Active Substance: INFLIXIMAB
     Dosage: 10 MILLIGRAM, Q6WK
     Route: 065

REACTIONS (4)
  - Clostridium difficile infection [Recovering/Resolving]
  - Volvulus [Recovering/Resolving]
  - Colitis ulcerative [Recovered/Resolved]
  - Colitis [Recovered/Resolved]
